FAERS Safety Report 4577346-X (Version None)
Quarter: 2005Q1

REPORT INFORMATION
  Report Type: 
  Country: None (occurrence: None)
  Receive Date: 20050210
  Receipt Date: 20050124
  Transmission Date: 20050727
  Serious: Yes (Disabling)
  Sender: FDA-Public Use
  Company Number: CA-GLAXOSMITHKLINE-A0544688A

PATIENT
  Sex: Male

DRUGS (4)
  1. AVODART [Suspect]
     Indication: DRUG USE FOR UNKNOWN INDICATION
     Route: 048
     Dates: start: 20040101
  2. BLOOD PRESSURE MEDICATION [Concomitant]
  3. HEART MEDICATION [Concomitant]
  4. ANTI-CHOLESTEROL MEDICATION [Concomitant]

REACTIONS (3)
  - CATARACT [None]
  - KERATOPATHY [None]
  - VISION BLURRED [None]
